FAERS Safety Report 9729265 (Version 1)
Quarter: 2013Q4

REPORT INFORMATION
  Report Type: Spontaneous
  Country: US (occurrence: US)
  Receive Date: 20131204
  Receipt Date: 20131204
  Transmission Date: 20140711
  Serious: No
  Sender: FDA-Public Use
  Company Number: US-BAYER-2013-147841

PATIENT
  Sex: Female

DRUGS (1)
  1. FINACEA [Suspect]
     Dosage: UNK

REACTIONS (2)
  - Application site pain [None]
  - Application site pruritus [None]
